FAERS Safety Report 15467805 (Version 2)
Quarter: 2018Q4

REPORT INFORMATION
  Report Type: Spontaneous
  Country: US (occurrence: US)
  Receive Date: 20181005
  Receipt Date: 20181017
  Transmission Date: 20190204
  Serious: No
  Sender: FDA-Public Use
  Company Number: US-HORIZON-DUE-0523-2018

PATIENT
  Age: 57 Year
  Sex: Female

DRUGS (1)
  1. DUEXIS [Suspect]
     Active Substance: FAMOTIDINE\IBUPROFEN
     Indication: SPONDYLITIS
     Dosage: 1 TABLET 3 TIMES A DAY
     Route: 048
     Dates: start: 20180925, end: 20180925

REACTIONS (3)
  - Hyperchlorhydria [Recovered/Resolved]
  - Malaise [Recovered/Resolved]
  - Nausea [Unknown]

NARRATIVE: CASE EVENT DATE: 20180925
